FAERS Safety Report 22036442 (Version 1)
Quarter: 2023Q1

REPORT INFORMATION
  Report Type: Spontaneous
  Country: US (occurrence: US)
  Receive Date: 20230225
  Receipt Date: 20230225
  Transmission Date: 20230417
  Serious: Yes (Death, Life-Threatening, Hospitalization, Other)
  Sender: FDA-Public Use
  Company Number: US-drreddys-LIT/USA/23/0161568

PATIENT
  Sex: Female

DRUGS (15)
  1. OXYTOCIN [Suspect]
     Active Substance: OXYTOCIN
     Indication: Induced labour
  2. OXYTOCIN [Suspect]
     Active Substance: OXYTOCIN
     Indication: Postpartum haemorrhage
  3. CARBOPROST TROMETHAMINE [Suspect]
     Active Substance: CARBOPROST TROMETHAMINE
     Indication: Postpartum haemorrhage
  4. PHENYLEPHRINE HYDROCHLORIDE [Suspect]
     Active Substance: PHENYLEPHRINE HYDROCHLORIDE
     Indication: Product used for unknown indication
  5. TRANEXAMIC ACID [Suspect]
     Active Substance: TRANEXAMIC ACID
     Indication: Haemorrhage prophylaxis
  6. MISOPROSTOL [Suspect]
     Active Substance: MISOPROSTOL
     Indication: Induced labour
  7. MISOPROSTOL [Suspect]
     Active Substance: MISOPROSTOL
     Indication: Postpartum haemorrhage
     Dosage: RE-INITIATED
  8. METHERGINE [Suspect]
     Active Substance: METHYLERGONOVINE MALEATE
     Indication: Postpartum haemorrhage
  9. NOREPINEPHRINE [Suspect]
     Active Substance: NOREPINEPHRINE
     Indication: Product used for unknown indication
  10. VASOPRESSIN [Suspect]
     Active Substance: VASOPRESSIN
     Indication: Product used for unknown indication
  11. ERYTHROPOIETIN [Concomitant]
     Active Substance: ERYTHROPOIETIN
     Indication: Blood erythropoietin increased
  12. IRON DEXTRAN [Concomitant]
     Active Substance: IRON DEXTRAN
     Indication: Blood erythropoietin increased
  13. FOLATE SODIUM [Concomitant]
     Active Substance: FOLATE SODIUM
     Indication: Blood erythropoietin increased
  14. ASCORBIC ACID [Concomitant]
     Active Substance: ASCORBIC ACID
     Indication: Prophylaxis
  15. VITAMIN B12 [Concomitant]
     Active Substance: CYANOCOBALAMIN
     Indication: Blood erythropoietin increased

REACTIONS (14)
  - Multiple organ dysfunction syndrome [Fatal]
  - Right ventricular failure [Fatal]
  - Hypervolaemia [Fatal]
  - Metabolic acidosis [Unknown]
  - Mental status changes [Unknown]
  - Hypoglycaemia [Unknown]
  - Hypotension [Unknown]
  - Pulmonary hypertension [Unknown]
  - Shock haemorrhagic [Unknown]
  - Postpartum haemorrhage [Unknown]
  - Intrauterine infection [Unknown]
  - Drug ineffective [Unknown]
  - Normal newborn [Unknown]
  - Exposure during pregnancy [Unknown]
